FAERS Safety Report 15664277 (Version 1)
Quarter: 2018Q4

REPORT INFORMATION
  Report Type: Report from Study
  Country: US (occurrence: US)
  Receive Date: 20181128
  Receipt Date: 20181128
  Transmission Date: 20190205
  Serious: Yes (Hospitalization)
  Sender: FDA-Public Use
  Company Number: US-ROCHE-2214082

PATIENT
  Age: 74 Year
  Sex: Male
  Weight: 77.1 kg

DRUGS (4)
  1. GEMCITABINE [Suspect]
     Active Substance: GEMCITABINE\GEMCITABINE HYDROCHLORIDE
     Indication: DIFFUSE LARGE B-CELL LYMPHOMA
     Dosage: 07/NOV/2018, MOST RECENT DOSE 2000 MG
     Route: 042
     Dates: start: 20181024
  2. OXALIPLATIN. [Suspect]
     Active Substance: OXALIPLATIN
     Indication: DIFFUSE LARGE B-CELL LYMPHOMA
     Dosage: 07/NOV/2018, MOST RECENT DOSE 200 MG
     Route: 042
     Dates: start: 20181024
  3. ATEZOLIZUMAB. [Suspect]
     Active Substance: ATEZOLIZUMAB
     Indication: DIFFUSE LARGE B-CELL LYMPHOMA
     Dosage: OVER 60 MINUTES?07/NOV/2018, MOST RECENT DOSE
     Route: 042
     Dates: start: 20181107
  4. RITUXIMAB. [Suspect]
     Active Substance: RITUXIMAB
     Indication: DIFFUSE LARGE B-CELL LYMPHOMA
     Dosage: 07/NOV/2018, MOST RECENT DOSE 700 MG
     Route: 042
     Dates: start: 20181024

REACTIONS (4)
  - Pyrexia [Unknown]
  - Chills [Unknown]
  - Diarrhoea [Unknown]
  - Vomiting [Unknown]

NARRATIVE: CASE EVENT DATE: 20181107
